FAERS Safety Report 8495094-0 (Version None)
Quarter: 2012Q3

REPORT INFORMATION
  Report Type: 
  Country: None (occurrence: None)
  Receive Date: 20120709
  Receipt Date: 20120704
  Transmission Date: 20120928
  Serious: Yes (Other)
  Sender: FDA-Public Use
  Company Number: PHHY2012JP058346

PATIENT
  Sex: Male

DRUGS (26)
  1. VOLTAREN [Concomitant]
     Dosage: 50 G, UNK
     Dates: start: 20100217
  2. CLARITHROMYCIN [Concomitant]
     Dosage: 400 MG, UNK
     Dates: start: 20091209, end: 20091215
  3. SULFAMETHOXAZOLE AND TRIMETHOPRIM [Concomitant]
     Indication: PROPHYLAXIS
     Dosage: 1 G, UNK
     Dates: start: 20100902, end: 20101017
  4. TASIGNA [Suspect]
     Indication: CHRONIC MYELOID LEUKAEMIA
     Dosage: 800 MG, DAILY
     Route: 048
     Dates: start: 20090330, end: 20090412
  5. LAC B [Concomitant]
     Dosage: 3 G, UNK
     Route: 048
     Dates: start: 20100923, end: 20101017
  6. TASIGNA [Suspect]
     Dosage: 400 MG, DAILY
     Route: 048
     Dates: start: 20090507, end: 20090610
  7. TASIGNA [Suspect]
     Dosage: 800 MG, DAILY
     Route: 048
     Dates: start: 20090709, end: 20090804
  8. URSO 250 [Concomitant]
     Dosage: 300 MG, UNK
     Dates: start: 20090430, end: 20091006
  9. RABEPRAZOLE SODIUM [Concomitant]
     Indication: PROPHYLAXIS
     Dosage: 10 MG, UNK
     Route: 048
     Dates: start: 20100902, end: 20101017
  10. ACYCLOVIR [Concomitant]
     Dosage: 200 MG, UNK
     Dates: start: 20100930, end: 20110930
  11. CEFAZOLIN SODIUM [Concomitant]
     Indication: PROPHYLAXIS
     Dosage: 500 MG, UNK
     Dates: start: 20100917
  12. DASEN [Concomitant]
     Dosage: 30 MG, UNK
     Route: 048
     Dates: start: 20091209, end: 20091215
  13. ALLOPURINOL [Concomitant]
     Dosage: 200 MG, UNK
     Route: 048
     Dates: end: 20090722
  14. GLYCYRON [Concomitant]
     Dosage: 210 MG, UNK
     Route: 048
     Dates: start: 20090409, end: 20090818
  15. TASIGNA [Suspect]
     Dosage: 400 MG, DAILY
     Route: 048
     Dates: start: 20090805, end: 20090901
  16. TASIGNA [Suspect]
     Dosage: 400 MG, DAILY
     Route: 048
     Dates: start: 20090916, end: 20091006
  17. NITROGLYCERIN [Concomitant]
     Dosage: 0.3 MG, UNK
     Dates: start: 20091222
  18. MYSER [Concomitant]
     Dosage: 5 G, UNK
     Dates: start: 20100414
  19. LEVOFLOXACIN [Concomitant]
     Dosage: 500 MG, UNK
     Route: 048
     Dates: start: 20100917
  20. TASIGNA [Suspect]
     Dosage: 600 MG, DAILY
     Route: 048
     Dates: start: 20090611, end: 20090708
  21. TASIGNA [Suspect]
     Dosage: 400 MG, DAILY
     Route: 048
     Dates: start: 20091004, end: 20090412
  22. ALLOPURINOL [Concomitant]
     Indication: PROPHYLAXIS
     Dosage: 200 MG, UNK
     Route: 048
     Dates: start: 20090514
  23. SPRYCEL [Concomitant]
     Indication: CHRONIC MYELOID LEUKAEMIA
     Dosage: 100 MG, UNK
     Route: 048
     Dates: start: 20100902, end: 20110330
  24. TASIGNA [Suspect]
     Dosage: 600 MG, DAILY
     Route: 048
     Dates: start: 20090902, end: 20090915
  25. TASIGNA [Suspect]
     Dosage: 600 MG, DAILY
     Route: 048
     Dates: start: 20100203, end: 20100829
  26. IMATINIB MESYLATE [Concomitant]
     Indication: CHRONIC MYELOID LEUKAEMIA
     Dosage: 600 MG, UNK
     Route: 048
     Dates: start: 20080714, end: 20090329

REACTIONS (1)
  - HYPERBILIRUBINAEMIA [None]
